FAERS Safety Report 4976748-7 (Version None)
Quarter: 2006Q2

REPORT INFORMATION
  Report Type: 
  Country: None (occurrence: None)
  Receive Date: 20060419
  Receipt Date: 20060103
  Transmission Date: 20061013
  Serious: Yes (Hospitalization, Disabling, Other)
  Sender: FDA-Public Use
  Company Number: US-MERCK-0601USA00252

PATIENT
  Age: 53 Year
  Sex: Male
  Weight: 139 kg

DRUGS (8)
  1. VIOXX [Suspect]
     Indication: BACK PAIN
     Route: 048
     Dates: start: 20020101, end: 20020101
  2. VIOXX [Suspect]
     Route: 048
     Dates: start: 20040101, end: 20040621
  3. VIOXX [Suspect]
     Indication: PAIN IN EXTREMITY
     Route: 048
     Dates: start: 20020101, end: 20020101
  4. VIOXX [Suspect]
     Route: 048
     Dates: start: 20040101, end: 20040621
  5. GLUCOPHAGE [Concomitant]
     Route: 065
  6. AMARYL [Concomitant]
     Indication: DIABETES MELLITUS
     Route: 065
  7. SKELAXIN [Concomitant]
     Route: 065
     Dates: start: 20020101
  8. ASPIRIN [Concomitant]
     Route: 065

REACTIONS (9)
  - ANHEDONIA [None]
  - BACK INJURY [None]
  - CEREBROVASCULAR ACCIDENT [None]
  - CONVULSION [None]
  - DYSPEPSIA [None]
  - EMOTIONAL DISTRESS [None]
  - FALL [None]
  - HYPERTENSION [None]
  - LIMB INJURY [None]
